FAERS Safety Report 8330166-2 (Version None)
Quarter: 2012Q2

REPORT INFORMATION
  Report Type: 
  Country: None (occurrence: None)
  Receive Date: 20120502
  Receipt Date: 20120426
  Transmission Date: 20120825
  Serious: No
  Sender: FDA-Public Use
  Company Number: US-TEVA-335369USA

PATIENT
  Sex: Female
  Weight: 72.186 kg

DRUGS (6)
  1. LEVOTHYROXINE SODIUM [Concomitant]
     Indication: HYPOTHYROIDISM
  2. TRAVOPROST [Concomitant]
  3. AZILECT [Suspect]
     Dosage: DAILY
     Route: 048
     Dates: start: 20120412, end: 20120422
  4. AZILECT [Suspect]
     Dosage: 1 MILLIGRAM;
     Route: 048
     Dates: start: 20120423
  5. SINEMET [Concomitant]
     Dosage: TID
     Route: 048
  6. PILOCARPINE [Concomitant]
     Indication: GLAUCOMA

REACTIONS (5)
  - VISUAL IMPAIRMENT [None]
  - MYALGIA [None]
  - ANXIETY [None]
  - DIZZINESS [None]
  - MUSCULOSKELETAL STIFFNESS [None]
